FAERS Safety Report 7586251-6 (Version None)
Quarter: 2011Q3

REPORT INFORMATION
  Report Type: 
  Country: None (occurrence: None)
  Receive Date: 20110701
  Receipt Date: 20110629
  Transmission Date: 20111222
  Serious: Yes (Hospitalization)
  Sender: FDA-Public Use
  Company Number: US-SANOFI-AVENTIS-2011SA041515

PATIENT
  Sex: Female

DRUGS (2)
  1. DABIGATRAN ETEXILATE [Suspect]
     Route: 065
  2. MULTAQ [Suspect]
     Route: 048

REACTIONS (2)
  - HAEMORRHAGE [None]
  - HYPOTENSION [None]
